FAERS Safety Report 7211993-1 (Version None)
Quarter: 2011Q1

REPORT INFORMATION
  Report Type: 
  Country: None (occurrence: None)
  Receive Date: 20110106
  Receipt Date: 20101227
  Transmission Date: 20110831
  Serious: No
  Sender: FDA-Public Use
  Company Number: US-BIOGENIDEC-2010BI044973

PATIENT
  Age: 53 Year
  Sex: Female

DRUGS (2)
  1. AVONEX [Suspect]
     Indication: MULTIPLE SCLEROSIS
     Route: 030
     Dates: start: 20100201
  2. AVONEX [Suspect]
     Route: 030
     Dates: end: 20020208

REACTIONS (6)
  - HEAT EXHAUSTION [None]
  - WEIGHT DECREASED [None]
  - PALPITATIONS [None]
  - BLOOD ALKALINE PHOSPHATASE INCREASED [None]
  - TRIGEMINAL NEURALGIA [None]
  - FEELING HOT [None]
